FAERS Safety Report 7762812-6 (Version None)
Quarter: 2011Q3

REPORT INFORMATION
  Report Type: 
  Country: None (occurrence: None)
  Receive Date: 20110920
  Receipt Date: 20110907
  Transmission Date: 20111222
  Serious: Yes (Hospitalization)
  Sender: FDA-Public Use
  Company Number: PT-MERCK-1107PRT00004

PATIENT
  Age: 15 Year
  Sex: Female

DRUGS (4)
  1. ISENTRESS [Suspect]
     Indication: HIV INFECTION
     Route: 048
     Dates: start: 20091101, end: 20100901
  2. ISENTRESS [Suspect]
     Route: 048
     Dates: start: 20101001
  3. DARUNAVIR AND RITONAVIR [Concomitant]
     Indication: HIV INFECTION
     Route: 065
     Dates: start: 20101001
  4. LAMIVUDINE [Concomitant]
     Indication: HIV INFECTION
     Route: 065
     Dates: start: 20101001

REACTIONS (2)
  - OFF LABEL USE [None]
  - VASCULITIS [None]
